FAERS Safety Report 9995304 (Version 1)
Quarter: 2014Q1

REPORT INFORMATION
  Report Type: Spontaneous
  Country: BR (occurrence: None)
  Receive Date: 20140307
  Receipt Date: 20140307
  Transmission Date: 20141002
  Serious: Yes (Hospitalization)
  Sender: FDA-Public Use
  Company Number: DSJ-2014-05232

PATIENT
  Age: 65 Year
  Sex: Male

DRUGS (2)
  1. BENICAR [Suspect]
     Indication: HYPERTENSION
     Route: 048
  2. HYDRALAZINE (HYDRALAZINE) (HYDRALAZINE) [Concomitant]

REACTIONS (1)
  - Angina pectoris [None]
